FAERS Safety Report 5463816-9 (Version None)
Quarter: 2007Q3

REPORT INFORMATION
  Report Type: 
  Country: None (occurrence: None)
  Receive Date: 20070919
  Receipt Date: 20070917
  Transmission Date: 20080115
  Serious: Yes (Life-Threatening, Other)
  Sender: FDA-Public Use
  Company Number: 07H-163-0313179-00

PATIENT
  Age: 57 Year
  Sex: Female
  Weight: 74.5 kg

DRUGS (4)
  1. HEPARIN SODIUM  (PRESERVATIVE-FREE) [Suspect]
     Indication: THROMBOSIS PROPHYLAXIS
     Dosage: 5000 UNITS, EVERY 8 HOURS, SUBCUTANEOUS
     Route: 058
     Dates: start: 20070829, end: 20070906
  2. PENICILLIN G [Concomitant]
  3. GENTAMICIN [Concomitant]
  4. LEVOTHYROXINE SODIUM [Concomitant]

REACTIONS (9)
  - ACTIVATED PARTIAL THROMBOPLASTIN TIME PROLONGED [None]
  - BRAIN OEDEMA [None]
  - CEREBRAL HAEMORRHAGE [None]
  - CEREBROVASCULAR ARTERIOVENOUS MALFORMATION [None]
  - INTRACRANIAL PRESSURE INCREASED [None]
  - MYCOTIC ANEURYSM [None]
  - RUPTURED CEREBRAL ANEURYSM [None]
  - SEPTIC EMBOLUS [None]
  - SUBARACHNOID HAEMORRHAGE [None]
